FAERS Safety Report 21548099 (Version 1)
Quarter: 2022Q4

REPORT INFORMATION
  Report Type: Spontaneous
  Country: PT (occurrence: PT)
  Receive Date: 20221103
  Receipt Date: 20221103
  Transmission Date: 20230112
  Serious: Yes (Hospitalization, Other)
  Sender: FDA-Public Use
  Company Number: PT-TEVA-2022-PT-2820438

PATIENT
  Age: 63 Year
  Sex: Male

DRUGS (1)
  1. PACLITAXEL [Suspect]
     Active Substance: PACLITAXEL
     Indication: Lung carcinoma cell type unspecified stage IV
     Dosage: 175MG/M3 EACH 3 WEEKS, AS THIRD LINE TREATMENT
     Route: 042

REACTIONS (2)
  - Hypersensitivity pneumonitis [Recovered/Resolved]
  - Pulmonary toxicity [Recovered/Resolved]
